FAERS Safety Report 22525897 (Version 1)
Quarter: 2023Q2

REPORT INFORMATION
  Report Type: Spontaneous
  Country: KR (occurrence: KR)
  Receive Date: 20230606
  Receipt Date: 20230606
  Transmission Date: 20230722
  Serious: Yes (Hospitalization, Other)
  Sender: FDA-Public Use
  Company Number: KR-ORGANON-O2306KOR000164

PATIENT
  Age: 67 Year
  Sex: Male
  Weight: 53 kg

DRUGS (9)
  1. COZAAR [Suspect]
     Active Substance: LOSARTAN POTASSIUM
     Indication: Secondary hypertension
     Dosage: 25 MILLIGRAM, QD
     Route: 048
     Dates: start: 20150321
  2. DOXOFYLLINE [Concomitant]
     Active Substance: DOXOFYLLINE
     Indication: Chronic obstructive pulmonary disease
     Dosage: 400 MILLIGRAM, BID (0.5 DAY), DOSAGE FROM UNCOATED TABLET
     Route: 048
     Dates: start: 20070828
  3. LAFUTIDINE [Concomitant]
     Active Substance: LAFUTIDINE
     Dosage: 10 MILLIGRAM, BID (0.5 DAY)
     Route: 048
     Dates: start: 20170926
  4. DIGOXIN [Concomitant]
     Active Substance: DIGOXIN
     Indication: Atrial fibrillation
     Dosage: 0.125 MILLIGRAM, QD, DOSAGE FORM UNCOATED TABLET
     Route: 048
     Dates: start: 20150314, end: 20190108
  5. DIGOXIN [Concomitant]
     Active Substance: DIGOXIN
     Indication: Atrial flutter
  6. DILTIAZEM HYDROCHLORIDE [Concomitant]
     Active Substance: DILTIAZEM HYDROCHLORIDE
     Indication: Cardiac failure
     Dosage: 90 MILLIGRAM, BID (0.5 DAY)
     Route: 048
     Dates: start: 20150314
  7. EBASTINE [Concomitant]
     Active Substance: EBASTINE
     Dosage: 10 MILLIGRAM, QD
     Route: 048
     Dates: start: 20140422
  8. PSEUDOEPHEDRINE HYDROCHLORIDE\TRIPROLIDINE HYDROCHLORIDE [Concomitant]
     Active Substance: PSEUDOEPHEDRINE HYDROCHLORIDE\TRIPROLIDINE HYDROCHLORIDE
     Dosage: 1.25 MILLIGRAM, Q8H (REPORTED AS 0.33 DAY), DOSAGE FORM: UNCOATED TABLET
     Route: 048
     Dates: start: 20181017, end: 20181023
  9. CEFDITOREN PIVOXIL [Concomitant]
     Active Substance: CEFDITOREN PIVOXIL
     Indication: Upper respiratory tract infection
     Dosage: 100 MILLIGRAM, Q8H (REPORTED AS 0.33 DAY)
     Route: 048
     Dates: start: 20181017, end: 20181023

REACTIONS (2)
  - Cardiomyopathy [Recovered/Resolved]
  - Condition aggravated [Recovered/Resolved]

NARRATIVE: CASE EVENT DATE: 20190213
